FAERS Safety Report 8932791 (Version 1)
Quarter: 2012Q4

REPORT INFORMATION
  Report Type: Report from Study
  Country: BE (occurrence: BE)
  Receive Date: 20121128
  Receipt Date: 20121128
  Transmission Date: 20130627
  Serious: Yes (Hospitalization, Other)
  Sender: FDA-Public Use
  Company Number: BE-BAXTER-2012BAX024743

PATIENT
  Age: 67 Year
  Sex: Female
  Weight: 84.8 kg

DRUGS (15)
  1. ENDOXAN [Suspect]
     Indication: MALIGNANT BREAST NEOPLASM
     Route: 042
     Dates: start: 20120405
  2. ENDOXAN [Suspect]
     Route: 042
     Dates: start: 20120426, end: 20120516
  3. EPIRUBICIN [Suspect]
     Indication: MALIGNANT BREAST NEOPLASM
     Route: 042
     Dates: start: 20120405
  4. EPIRUBICIN [Suspect]
     Route: 042
     Dates: start: 20120426, end: 20120516
  5. FLUOROURACIL [Suspect]
     Indication: MALIGNANT BREAST NEOPLASM
     Route: 042
     Dates: start: 20120405, end: 20120516
  6. FLUOROURACIL [Suspect]
     Route: 042
     Dates: start: 20120426, end: 20120516
  7. TRASTUZUMAB [Suspect]
     Indication: MALIGNANT BREAST NEOPLASM
     Dosage: LOADING DOSE
     Route: 042
     Dates: start: 20120608
  8. TRASTUZUMAB [Suspect]
     Dosage: MAINTENENCE DOSE
     Route: 042
  9. TRASTUZUMAB [Suspect]
     Route: 042
     Dates: start: 20120920
  10. PERTUZUMAB [Suspect]
     Indication: MALIGNANT BREAST NEOPLASM
     Dosage: LOADING DOSE
     Route: 042
     Dates: start: 20120608
  11. PERTUZUMAB [Suspect]
     Dosage: MAINTENENCE DOSE
     Route: 042
  12. PERTUZUMAB [Suspect]
     Route: 042
     Dates: start: 20120920
  13. TITRACE [Concomitant]
     Indication: DRUG USE FOR UNKNOWN INDICATION
     Route: 065
     Dates: start: 20120315
  14. ONBREZ [Concomitant]
     Indication: DRUG USE FOR UNKNOWN INDICATION
     Route: 065
     Dates: start: 20120910
  15. SPIRIVA [Concomitant]
     Indication: DRUG USE FOR UNKNOWN INDICATION
     Dosage: 1 INHALATION
     Route: 065
     Dates: start: 20120910

REACTIONS (3)
  - Pneumonia [Recovered/Resolved]
  - Bronchitis [Recovered/Resolved]
  - Pulmonary embolism [Unknown]
